FAERS Safety Report 10893822 (Version 1)
Quarter: 2015Q1

REPORT INFORMATION
  Report Type: Report from Study
  Country: US (occurrence: US)
  Receive Date: 20150306
  Receipt Date: 20150306
  Transmission Date: 20150721
  Serious: No
  Sender: FDA-Public Use
  Company Number: US-AMGEN-USASL2014076634

PATIENT
  Age: 89 Year

DRUGS (4)
  1. SENSIPAR [Suspect]
     Active Substance: CINACALCET HYDROCHLORIDE
     Indication: PRODUCT USED FOR UNKNOWN INDICATION
     Dosage: 30 MG, QD
     Route: 048
  2. AZACITIDINE. [Concomitant]
     Active Substance: AZACITIDINE
     Dosage: 135 MG, UNK
     Route: 058
     Dates: start: 20130913
  3. FILGRASTIM [Concomitant]
     Active Substance: FILGRASTIM
     Dosage: 300 MUG/ML, UNK
     Route: 058
     Dates: start: 20130916
  4. EPOETIN ALFA [Concomitant]
     Active Substance: ERYTHROPOIETIN
     Dosage: 40000 UNITS /ML
     Route: 058
     Dates: start: 20130919

REACTIONS (1)
  - Diarrhoea [Not Recovered/Not Resolved]

NARRATIVE: CASE EVENT DATE: 20140203
